FAERS Safety Report 7829381 (Version 9)
Quarter: 2012Q4

REPORT INFORMATION
  Report Type: 
  Country: US (occurrence: US)
  Receive Date: 20110225
  Receipt Date: 20120920
  Transmission Date: 20130627
  Serious: Yes (Hospitalization, Disabling, Other)
  Sender: FDA-Public Use
  Company Number: US-009507513-1102USA02321

PATIENT

DRUGS (11)
  1. FOSAMAX [Suspect]
     Indication: OSTEOPOROSIS
     Dosage: 5 mg, qd
     Route: 048
     Dates: start: 19990407, end: 20010713
  2. FOSAMAX [Suspect]
     Indication: OSTEOPENIA
     Dosage: 70 mg, QW
     Route: 048
     Dates: start: 2000, end: 200802
  3. FOSAMAX D [Suspect]
     Indication: OSTEOPOROSIS
     Route: 048
     Dates: start: 199904, end: 201003
  4. FOSAMAX [Suspect]
     Indication: OSTEOPOROSIS
     Dosage: 70 mg, QW
     Route: 048
     Dates: start: 20080320, end: 201007
  5. FOSAMAX [Suspect]
     Indication: OSTEOPENIA
  6. FOSAMAX [Suspect]
     Dosage: 70 mg, UNK
     Route: 048
     Dates: start: 20080903, end: 20100310
  7. METICORTEN [Suspect]
     Indication: MYASTHENIA GRAVIS
     Dates: start: 1991
  8. IRON (UNSPECIFIED) [Concomitant]
     Dosage: 30 mg, UNK
     Dates: start: 199803, end: 200007
  9. VITAMIN B COMPLEX [Concomitant]
     Dates: start: 199811
  10. MK-9278 [Concomitant]
     Dates: start: 19981101
  11. ACTONEL [Suspect]
     Dosage: 150 mg, QM
     Route: 048
     Dates: start: 201007

REACTIONS (74)
  - Femur fracture [Unknown]
  - Open reduction of fracture [Unknown]
  - Gastroenteritis viral [Unknown]
  - Dehydration [Unknown]
  - Renal failure [Unknown]
  - Renal failure acute [Recovering/Resolving]
  - Haemorrhagic anaemia [Unknown]
  - Stress fracture [Unknown]
  - Hypoxia [Unknown]
  - Femur fracture [Unknown]
  - Fall [Unknown]
  - Muscle injury [Unknown]
  - Foot fracture [Unknown]
  - Hypertension [Not Recovered/Not Resolved]
  - Hypercholesterolaemia [Not Recovered/Not Resolved]
  - Rheumatoid arthritis [Not Recovered/Not Resolved]
  - Diabetes mellitus [Not Recovered/Not Resolved]
  - Low turnover osteopathy [Unknown]
  - Major depression [Not Recovered/Not Resolved]
  - Gait disturbance [Unknown]
  - Sjogren^s syndrome [Not Recovered/Not Resolved]
  - Productive cough [Not Recovered/Not Resolved]
  - Cataract [Unknown]
  - Dry eye [Not Recovered/Not Resolved]
  - Pain [Not Recovered/Not Resolved]
  - Sinusitis [Unknown]
  - Bursitis [Not Recovered/Not Resolved]
  - Diabetic neuropathy [Not Recovered/Not Resolved]
  - Malaise [Not Recovered/Not Resolved]
  - Renal cyst [Unknown]
  - Hepatic steatosis [Unknown]
  - Anaemia [Unknown]
  - Peripheral sensory neuropathy [Not Recovered/Not Resolved]
  - Intervertebral disc disorder [Unknown]
  - Radiculopathy [Unknown]
  - Haemorrhoids [Unknown]
  - Diverticulum intestinal [Unknown]
  - Haematochezia [Unknown]
  - Neck pain [Unknown]
  - Road traffic accident [Unknown]
  - Fibromyalgia [Unknown]
  - Overweight [Unknown]
  - Tendon disorder [Unknown]
  - Foot fracture [Unknown]
  - Neuropathic arthropathy [Unknown]
  - Sleep disorder [Unknown]
  - Intervertebral disc protrusion [Not Recovered/Not Resolved]
  - Sciatica [Not Recovered/Not Resolved]
  - Bone fragmentation [Unknown]
  - Joint dislocation [Unknown]
  - Dry mouth [Not Recovered/Not Resolved]
  - Gingival disorder [Unknown]
  - Blood creatinine increased [Unknown]
  - Iron deficiency anaemia [Unknown]
  - Haematocrit decreased [Unknown]
  - Tooth disorder [Unknown]
  - Plantar fasciitis [Unknown]
  - Hyponatraemia [Unknown]
  - Polyarthritis [Unknown]
  - Plantar fascial fibromatosis [Unknown]
  - Pneumonia [Unknown]
  - Foot deformity [Unknown]
  - Bone disorder [Unknown]
  - Oedema peripheral [Unknown]
  - Arthralgia [Not Recovered/Not Resolved]
  - Fatigue [Not Recovered/Not Resolved]
  - Arthralgia [Unknown]
  - Back pain [Not Recovered/Not Resolved]
  - Gastroenteritis [Unknown]
  - Gastrooesophageal reflux disease [Unknown]
  - Drug hypersensitivity [Unknown]
  - Pain in extremity [Unknown]
  - Dyspepsia [Not Recovered/Not Resolved]
  - Headache [Unknown]
